FAERS Safety Report 8099370-5 (Version None)
Quarter: 2012Q1

REPORT INFORMATION
  Report Type: 
  Country: None (occurrence: None)
  Receive Date: 20120129
  Receipt Date: 20111021
  Transmission Date: 20120608
  Serious: No
  Sender: FDA-Public Use
  Company Number: US-ABBOTT-11P-163-0854995-00

PATIENT
  Age: 50 Year
  Sex: Female

DRUGS (11)
  1. CYMBALTA [Concomitant]
     Indication: FIBROMYALGIA
  2. METHOTREXATE [Concomitant]
     Indication: PRODUCT USED FOR UNKNOWN INDICATION
  3. HUMIRA [Suspect]
     Indication: PSORIATIC ARTHROPATHY
     Dates: start: 20110901
  4. TRAMADOL HCL [Concomitant]
     Indication: PAIN
     Dosage: 1-2 TABS QID
  5. FOLIC ACID [Concomitant]
     Indication: VITAMIN SUPPLEMENTATION
  6. FLEXERIL [Concomitant]
     Indication: MUSCLE SPASMS
     Dosage: 1 TO 2, TWICE DAILY
  7. FOLIC ACID [Concomitant]
     Indication: PSORIATIC ARTHROPATHY
  8. ADDERALL XR 10 [Concomitant]
     Indication: CHRONIC FATIGUE SYNDROME
  9. CYMBALTA [Concomitant]
     Indication: DEPRESSION
  10. DIAZEPAM [Concomitant]
     Indication: POOR QUALITY SLEEP
     Dosage: AT BEDTIME PRN
  11. PREDNISONE TAB [Concomitant]
     Indication: PSORIATIC ARTHROPATHY

REACTIONS (3)
  - EXPOSURE TO COMMUNICABLE DISEASE [None]
  - INJECTION SITE HAEMATOMA [None]
  - HEADACHE [None]
